FAERS Safety Report 5026027-7 (Version None)
Quarter: 2006Q2

REPORT INFORMATION
  Report Type: 
  Country: None (occurrence: None)
  Receive Date: 20060614
  Receipt Date: 20060602
  Transmission Date: 20061013
  Serious: Yes (Other)
  Sender: FDA-Public Use
  Company Number: US-ROCHE-450618

PATIENT
  Age: 47 Year
  Sex: Male

DRUGS (10)
  1. PEGASYS [Suspect]
     Dosage: THERAPY SUSPENDED. STOP DATE UNSPECIFIED. ROUTE REPORTED AS INJECTABLE.
     Route: 050
     Dates: start: 20060408
  2. PEGASYS [Suspect]
     Route: 050
     Dates: start: 20060524
  3. COPEGUS [Suspect]
     Dosage: THERAPY SUSPENDED. STOP DATE UNSPECIFIED.
     Route: 048
     Dates: start: 20060408
  4. COPEGUS [Suspect]
     Route: 048
     Dates: start: 20060524
  5. ADVAIR DISKUS 100/50 [Concomitant]
  6. ALBUTEROL [Concomitant]
     Route: 055
  7. NOVOLIN [Concomitant]
  8. HUMALOG [Concomitant]
  9. COMBIVENT [Concomitant]
  10. SEREVENT [Concomitant]
     Route: 055

REACTIONS (6)
  - ATRIOVENTRICULAR BLOCK [None]
  - BLOOD PRESSURE INCREASED [None]
  - CHEST PAIN [None]
  - CORONARY ARTERY OCCLUSION [None]
  - DYSPNOEA [None]
  - FATIGUE [None]
